FAERS Safety Report 20004509 (Version 1)
Quarter: 2021Q4

REPORT INFORMATION
  Report Type: Spontaneous
  Country: NL (occurrence: NL)
  Receive Date: 20211027
  Receipt Date: 20211027
  Transmission Date: 20220303
  Serious: Yes (Other)
  Sender: FDA-Public Use
  Company Number: None

PATIENT
  Age: 77 Year
  Sex: Female

DRUGS (7)
  1. CIPROFLOXACIN [Suspect]
     Active Substance: CIPROFLOXACIN
     Indication: Product used for unknown indication
     Dosage: 1000 MILLIGRAM DAILY; 2 X A DAY 1 PIECE
     Dates: start: 20210928, end: 20210928
  2. DEXAMETHASONE [Concomitant]
     Active Substance: DEXAMETHASONE
     Dosage: 0.5 MG (MILLIGRAMS)THERAPY START DATE :THERAPY END DATE:ASKU
  3. LORAZEPAM  / Brand name not specified [Concomitant]
     Dosage: 1 MG (MILLIGRAM)THERAPY START DATE:THERAPY END DATE:ASKU
  4. DEXAMETHASONE [Concomitant]
     Active Substance: DEXAMETHASONE
     Dosage: 4 MG (MILLIGRAM)THERAPY START DATE :THERAPY END DATE:ASKU
  5. TIMOLOL/TAFLUPROST  / TAPTIQOM [Concomitant]
     Dosage: 5 MG (MILLIGRAMS)/15 UG/ML (MICROGRAMS PER MILLILITER)THERAPY START DATE :THERAPY END DATE:ASKU
  6. METOPROLOL  MGA (SUCCINAAT) / Brand name not specified [Concomitant]
     Dosage: 25 MG (MILLIGRAM)THERAPY START DATE:THERAPY END DATE:ASKU
  7. LEVETIRACETAM  / Brand name not specified [Concomitant]
     Dosage: 500 MG (MILLIGRAM)THERAPY START DATE:THERAPY END DATE :ASKU

REACTIONS (1)
  - Epilepsy [Recovered/Resolved]

NARRATIVE: CASE EVENT DATE: 20210928
